FAERS Safety Report 16292187 (Version 3)
Quarter: 2023Q2

REPORT INFORMATION
  Report Type: Spontaneous
  Country: US (occurrence: None)
  Receive Date: 20190509
  Receipt Date: 20230518
  Transmission Date: 20230721
  Serious: Yes (Hospitalization, Other)
  Sender: FDA-Public Use
  Company Number: 2019SE63041

PATIENT
  Age: 20867 Day
  Sex: Female
  Weight: 144.2 kg

DRUGS (56)
  1. NEXIUM [Suspect]
     Active Substance: ESOMEPRAZOLE MAGNESIUM
     Indication: Gastrooesophageal reflux disease
     Route: 048
     Dates: start: 200701, end: 201512
  2. NEXIUM [Suspect]
     Active Substance: ESOMEPRAZOLE MAGNESIUM
     Indication: Gastrooesophageal reflux disease
     Route: 048
     Dates: start: 2007, end: 2016
  3. NEXIUM [Suspect]
     Active Substance: ESOMEPRAZOLE MAGNESIUM
     Indication: Gastrooesophageal reflux disease
     Route: 048
     Dates: start: 20120506
  4. NEXIUM [Suspect]
     Active Substance: ESOMEPRAZOLE MAGNESIUM
     Indication: Gastrooesophageal reflux disease
     Route: 048
     Dates: start: 20120220
  5. PREVACID [Suspect]
     Active Substance: LANSOPRAZOLE
     Indication: Gastrooesophageal reflux disease
     Route: 065
     Dates: start: 200701, end: 201512
  6. PREVACID [Suspect]
     Active Substance: LANSOPRAZOLE
     Indication: Gastrooesophageal reflux disease
     Route: 065
     Dates: start: 2007, end: 2016
  7. LOSARTAN [Concomitant]
     Active Substance: LOSARTAN
     Indication: Blood pressure abnormal
  8. ATORVASTATIN [Concomitant]
     Active Substance: ATORVASTATIN
     Indication: Blood cholesterol
  9. GABAPENTIN [Concomitant]
     Active Substance: GABAPENTIN
     Indication: Pain
  10. CARVEDILOL [Concomitant]
     Active Substance: CARVEDILOL
     Indication: Blood pressure abnormal
  11. TRAMADOL [Concomitant]
     Active Substance: TRAMADOL
     Indication: Pain
     Dates: start: 2016
  12. FUROSEMIDE [Concomitant]
     Active Substance: FUROSEMIDE
     Indication: Pain
     Dates: start: 2016
  13. LEVOFLOXACIN [Concomitant]
     Active Substance: LEVOFLOXACIN
     Dates: start: 2016
  14. HYDRALAZINE [Concomitant]
     Active Substance: HYDRALAZINE HYDROCHLORIDE
     Dates: start: 2015
  15. HYDRALAZINE [Concomitant]
     Active Substance: HYDRALAZINE HYDROCHLORIDE
     Dates: start: 2016
  16. FLUOXETINE HYDROCHLORIDE [Concomitant]
     Active Substance: FLUOXETINE HYDROCHLORIDE
     Dates: start: 2016
  17. ASPIRIN [Concomitant]
     Active Substance: ASPIRIN
     Indication: Pain
     Dosage: AS NEEDED
  18. HYDROCHLOROTHIAZIDE [Concomitant]
     Active Substance: HYDROCHLOROTHIAZIDE
  19. KLOR-CON [Concomitant]
     Active Substance: POTASSIUM CHLORIDE
  20. BENZONATATE [Concomitant]
     Active Substance: BENZONATATE
  21. DICLOFENAC SODIUM [Concomitant]
     Active Substance: DICLOFENAC SODIUM
  22. SINGULAIR [Concomitant]
     Active Substance: MONTELUKAST SODIUM
  23. ACETAMINOPHEN\OXYCODONE HYDROCHLORIDE [Concomitant]
     Active Substance: ACETAMINOPHEN\OXYCODONE HYDROCHLORIDE
  24. NORVASC [Concomitant]
     Active Substance: AMLODIPINE BESYLATE
  25. AMLODIPINE BESYLATE [Concomitant]
     Active Substance: AMLODIPINE BESYLATE
  26. CLONIDINE [Concomitant]
     Active Substance: CLONIDINE
  27. DIOVAN [Concomitant]
     Active Substance: VALSARTAN
  28. PROCARDIA [Concomitant]
     Active Substance: NIFEDIPINE
  29. GLUCOPHAGE [Concomitant]
     Active Substance: METFORMIN HYDROCHLORIDE
  30. MELOXICAM [Concomitant]
     Active Substance: MELOXICAM
  31. TESSALON [Concomitant]
     Active Substance: BENZONATATE
  32. FLEXERIL [Concomitant]
     Active Substance: CYCLOBENZAPRINE HYDROCHLORIDE
  33. TIOTROPIUM BROMIDE [Concomitant]
     Active Substance: TIOTROPIUM BROMIDE
  34. DOCUSATE [Concomitant]
     Active Substance: DOCUSATE
  35. HEPARIN [Concomitant]
     Active Substance: HEPARIN SODIUM
  36. PROTONIX [Concomitant]
     Active Substance: PANTOPRAZOLE SODIUM
  37. METHYLPREDNISOLONE [Concomitant]
     Active Substance: METHYLPREDNISOLONE
  38. DUONEB [Concomitant]
     Active Substance: ALBUTEROL SULFATE\IPRATROPIUM BROMIDE
  39. HUMALOG [Concomitant]
     Active Substance: INSULIN LISPRO
  40. VIBRAMYCIN [Concomitant]
     Active Substance: DOXYCYCLINE
  41. MONOPRIL [Concomitant]
     Active Substance: FOSINOPRIL SODIUM
  42. FENTANYL [Concomitant]
     Active Substance: FENTANYL
  43. MUCINEX [Concomitant]
     Active Substance: GUAIFENESIN
  44. PULMICORT TURBUHALER [Concomitant]
     Active Substance: BUDESONIDE
  45. ROCEPHIN [Concomitant]
     Active Substance: CEFTRIAXONE SODIUM
  46. NITROGLYCERIN [Concomitant]
     Active Substance: NITROGLYCERIN
  47. DIAZEPAM [Concomitant]
     Active Substance: DIAZEPAM
  48. RESTORIL [Concomitant]
     Active Substance: TEMAZEPAM
  49. VITAMINS [Concomitant]
     Active Substance: VITAMINS
  50. ZOFRAN [Concomitant]
     Active Substance: ONDANSETRON HYDROCHLORIDE
  51. DILAUDID [Concomitant]
     Active Substance: HYDROMORPHONE HYDROCHLORIDE
  52. LOVENOX [Concomitant]
     Active Substance: ENOXAPARIN SODIUM
  53. AMARYL [Concomitant]
     Active Substance: GLIMEPIRIDE
  54. MORPHINE [Concomitant]
     Active Substance: MORPHINE
  55. BUMEX [Concomitant]
     Active Substance: BUMETANIDE
  56. CIPROFLOXACIN [Concomitant]
     Active Substance: CIPROFLOXACIN
     Dates: start: 20120220

REACTIONS (5)
  - Chronic kidney disease [Not Recovered/Not Resolved]
  - Acute kidney injury [Not Recovered/Not Resolved]
  - Nephrogenic anaemia [Unknown]
  - Renal failure [Unknown]
  - Renal tubular necrosis [Unknown]

NARRATIVE: CASE EVENT DATE: 20080817
